FAERS Safety Report 8044790-8 (Version None)
Quarter: 2012Q1

REPORT INFORMATION
  Report Type: 
  Country: None (occurrence: None)
  Receive Date: 20120113
  Receipt Date: 20120109
  Transmission Date: 20120608
  Serious: Yes (Life-Threatening, Hospitalization, Congenital Anomaly, Other)
  Sender: FDA-Public Use
  Company Number: US-PFIZER INC-2007095334

PATIENT
  Sex: Male
  Weight: 4 kg

DRUGS (8)
  1. CLARITIN-D [Concomitant]
     Dosage: UNK
     Route: 064
  2. SYNTHROID [Concomitant]
     Indication: HYPOTHYROIDISM
     Dosage: UNK
     Route: 064
  3. ZOLOFT [Suspect]
     Indication: DEPRESSION
     Dosage: 100 MG, 1X/DAY
     Route: 064
  4. LEVOTHYROXINE [Concomitant]
     Dosage: UNK
     Route: 064
  5. ADVAIR DISKUS 100/50 [Concomitant]
     Dosage: UNK
     Route: 064
  6. SINGULAIR [Concomitant]
     Dosage: UNK
     Route: 064
  7. ACTOS [Concomitant]
     Indication: TYPE 2 DIABETES MELLITUS
     Dosage: UNK
     Route: 064
  8. INSULIN [Concomitant]
     Indication: TYPE 2 DIABETES MELLITUS
     Dosage: UNK
     Route: 064

REACTIONS (7)
  - DEVELOPMENTAL DELAY [None]
  - PULMONARY ARTERY ATRESIA [None]
  - RESPIRATORY DISTRESS [None]
  - ASTHMA [None]
  - FALLOT'S TETRALOGY [None]
  - FOETAL EXPOSURE DURING PREGNANCY [None]
  - GRAND MAL CONVULSION [None]
